FAERS Safety Report 18754889 (Version 4)
Quarter: 2021Q1

REPORT INFORMATION
  Report Type: Report from Study
  Country: JP (occurrence: JP)
  Receive Date: 20210119
  Receipt Date: 20210215
  Transmission Date: 20210419
  Serious: Yes (Other)
  Sender: FDA-Public Use
  Company Number: JP-JNJFOC-20210121472

PATIENT

DRUGS (4)
  1. VELCADE [Suspect]
     Active Substance: BORTEZOMIB
     Indication: PLASMA CELL MYELOMA
     Dosage: DOSE UNKNOWN
     Route: 065
  2. DEXAMETHASONE. [Concomitant]
     Active Substance: DEXAMETHASONE
     Indication: PLASMA CELL MYELOMA
     Dosage: DOSE UNKNOWN
     Route: 065
  3. LENALIDOMIDE [Concomitant]
     Active Substance: LENALIDOMIDE
     Dosage: DOSE UNKNOWN
     Route: 048
  4. DARZALEX [Suspect]
     Active Substance: DARATUMUMAB
     Indication: PLASMA CELL MYELOMA
     Route: 041

REACTIONS (17)
  - Infusion related reaction [Unknown]
  - Neutropenia [Unknown]
  - Transaminases increased [Unknown]
  - Fatigue [Unknown]
  - Lymphopenia [Unknown]
  - Throat irritation [Unknown]
  - Nausea [Unknown]
  - Blood creatinine increased [Unknown]
  - Insomnia [Unknown]
  - Depression [Unknown]
  - Constipation [Unknown]
  - Tumour lysis syndrome [Unknown]
  - Thrombocytopenia [Unknown]
  - Cytomegalovirus viraemia [Unknown]
  - Febrile neutropenia [Unknown]
  - Anaemia [Unknown]
  - Sepsis [Unknown]
